FAERS Safety Report 7884673 (Version 4)
Quarter: 2013Q1

REPORT INFORMATION
  Report Type: Spontaneous
  Country: US (occurrence: US)
  Receive Date: 20110405
  Receipt Date: 20130115
  Transmission Date: 20140127
  Serious: Yes (Hospitalization, Other)
  Sender: FDA-Public Use
  Company Number: US-BAYER-2011-028349

PATIENT
  Age: 23 Year
  Sex: Female
  Weight: 116.55 kg

DRUGS (3)
  1. YAZ [Suspect]
     Dosage: UNK
     Route: 048
     Dates: start: 200801, end: 200806
  2. WELLBUTRIN [Concomitant]
     Dosage: 150 MG, QD
  3. PRILOSEC [Concomitant]
     Dosage: UNK UNK, BID

REACTIONS (8)
  - Pulmonary embolism [Recovered/Resolved]
  - Deep vein thrombosis [Recovered/Resolved]
  - Cholecystectomy [None]
  - Cholecystitis chronic [None]
  - Pain [Recovered/Resolved]
  - Anxiety [None]
  - Emotional distress [None]
  - Injury [None]
